FAERS Safety Report 10128718 (Version 1)
Quarter: 2014Q2

REPORT INFORMATION
  Report Type: Spontaneous
  Country: GB (occurrence: None)
  Receive Date: 20140423
  Receipt Date: 20140423
  Transmission Date: 20141212
  Serious: Yes (Hospitalization)
  Sender: FDA-Public Use
  Company Number: AUR-APL-2013-01134

PATIENT
  Age: 68 Year
  Sex: Female

DRUGS (5)
  1. METFORMIN (METFORMIN) [Suspect]
     Indication: PRODUCT USED FOR UNKNOWN INDICATION
  2. FLIXOTIDE (FLUTICASONE PROPIONATE) [Suspect]
     Indication: PRODUCT USED FOR UNKNOWN INDICATION
  3. PREDNISOLONE (PREDNISOLONE) [Suspect]
     Indication: ASTHMA
  4. SINGULAIR (MONTELUKAST) 10MG [Suspect]
     Indication: ASTHMA
     Route: 048
  5. THEOPHYLLINE (THEOPHYLLINE) [Suspect]
     Indication: PRODUCT USED FOR UNKNOWN INDICATION

REACTIONS (5)
  - Peritonitis bacterial [None]
  - Peritoneal abscess [None]
  - Escherichia infection [None]
  - Gram stain positive [None]
  - Purulence [None]
